FAERS Safety Report 8230618-X (Version None)
Quarter: 2012Q1

REPORT INFORMATION
  Report Type: 
  Country: None (occurrence: None)
  Receive Date: 20120321
  Receipt Date: 20120306
  Transmission Date: 20120608
  Serious: Yes (Hospitalization)
  Sender: FDA-Public Use
  Company Number: 20120116

PATIENT
  Age: 14 Year
  Sex: Female
  Weight: 48 kg

DRUGS (2)
  1. VENOFER [Suspect]
     Indication: SERUM FERRITIN DECREASED
     Dosage: 500 MG INTRAVENOUS DRIP
     Route: 041
     Dates: start: 20120220, end: 20120220
  2. VENOFER [Suspect]
     Indication: HAEMOGLOBIN DECREASED
     Dosage: 500 MG INTRAVENOUS DRIP
     Route: 041
     Dates: start: 20120220, end: 20120220

REACTIONS (10)
  - SKIN DISCOLOURATION [None]
  - MALAISE [None]
  - ARTHRALGIA [None]
  - DRUG HYPERSENSITIVITY [None]
  - RASH [None]
  - ANXIETY [None]
  - OEDEMA PERIPHERAL [None]
  - MUSCLE SPASMS [None]
  - JOINT SWELLING [None]
  - DYSPNOEA [None]
